FAERS Safety Report 15746004 (Version 2)
Quarter: 2019Q2

REPORT INFORMATION
  Report Type: Spontaneous
  Country: JP (occurrence: JP)
  Receive Date: 20181220
  Receipt Date: 20190416
  Transmission Date: 20190711
  Serious: Yes (Death)
  Sender: FDA-Public Use
  Company Number: JP-ACTELION-A-US2018-184009

PATIENT
  Sex: Female

DRUGS (11)
  1. REVATIO [Concomitant]
     Active Substance: SILDENAFIL CITRATE
     Dosage: UNK
     Dates: start: 20180924, end: 20180926
  2. SENNOSIDE [Concomitant]
     Active Substance: SENNOSIDES
  3. WARFARIN [Concomitant]
     Active Substance: WARFARIN
     Dosage: UNK
     Dates: start: 20180919, end: 20180926
  4. VENTAVIS [Suspect]
     Active Substance: ILOPROST
     Dosage: FROM FIRST DAY, SECOND TIME 5 MCG, QID
     Route: 055
     Dates: start: 20180922, end: 20180924
  5. BERAPROST [Concomitant]
     Active Substance: BERAPROST
  6. OXYGEN. [Concomitant]
     Active Substance: OXYGEN
     Dosage: UNK
     Dates: start: 20180919, end: 20180926
  7. VENTAVIS [Suspect]
     Active Substance: ILOPROST
     Indication: PULMONARY ARTERIAL HYPERTENSION
     Dosage: 10 MCG, 6ID
     Route: 055
     Dates: start: 20180922, end: 20180924
  8. VENTAVIS [Suspect]
     Active Substance: ILOPROST
     Dosage: FIRST DAY FIRST TIME 2.5 MCG ONCE
     Route: 055
     Dates: start: 20180922, end: 20180922
  9. OPSUMIT [Concomitant]
     Active Substance: MACITENTAN
     Dosage: UNK
     Dates: start: 20180920, end: 20180926
  10. ROZEREM [Concomitant]
     Active Substance: RAMELTEON
  11. BELSOMRA [Concomitant]
     Active Substance: SUVOREXANT

REACTIONS (3)
  - Condition aggravated [Fatal]
  - Pulmonary arterial hypertension [Fatal]
  - Gastric cancer [Fatal]
